FAERS Safety Report 14661246 (Version 1)
Quarter: 2018Q1

REPORT INFORMATION
  Report Type: Report from Study
  Country: BR (occurrence: BR)
  Receive Date: 20180320
  Receipt Date: 20180320
  Transmission Date: 20180509
  Serious: Yes (Death)
  Sender: FDA-Public Use
  Company Number: PHHY2018BR047767

PATIENT
  Age: 86 Year
  Sex: Female

DRUGS (1)
  1. ENTRESTO [Suspect]
     Active Substance: SACUBITRIL\VALSARTAN
     Indication: ANGINA PECTORIS
     Dosage: 1 DF, BID (ONE IN THE MORNING AND ONE IN THE NIGHT)
     Route: 048
     Dates: start: 201708, end: 201801

REACTIONS (3)
  - Cardiac arrest [Fatal]
  - Depressed mood [Fatal]
  - Product use in unapproved indication [Unknown]

NARRATIVE: CASE EVENT DATE: 201708
